FAERS Safety Report 10449891 (Version 1)
Quarter: 2014Q3

REPORT INFORMATION
  Report Type: Spontaneous
  Country: US (occurrence: US)
  Receive Date: 20140912
  Receipt Date: 20140912
  Transmission Date: 20150326
  Serious: Yes (Other)
  Sender: FDA-Public Use
  Company Number: US-ACTAVIS-2014-19826

PATIENT
  Age: 28 Year
  Sex: Female
  Weight: 52 kg

DRUGS (4)
  1. LORATADINE/PSEUDOEPHEDRINE SULFATE (WATSON LABORATORIES) [Suspect]
     Active Substance: LORATADINE\PSEUDOEPHEDRINE SULFATE
     Indication: HYPERSENSITIVITY
     Dosage: 2 UNK, UNK
     Route: 048
     Dates: start: 20140828, end: 20140828
  2. MONTELUKAST [Concomitant]
     Active Substance: MONTELUKAST SODIUM
     Indication: PRODUCT USED FOR UNKNOWN INDICATION
     Dosage: UNK
     Dates: start: 2013
  3. PREVIFEM [Concomitant]
     Active Substance: ETHINYL ESTRADIOL\NORGESTIMATE
     Indication: PRODUCT USED FOR UNKNOWN INDICATION
     Dosage: UNK
     Dates: start: 2013
  4. LORATADINE/PSEUDOEPHEDRINE SULFATE (WATSON LABORATORIES) [Suspect]
     Active Substance: LORATADINE\PSEUDOEPHEDRINE SULFATE
     Indication: ACCIDENTAL OVERDOSE
     Dosage: 1 UNK, UNK
     Route: 048
     Dates: start: 20140828, end: 20140828

REACTIONS (5)
  - Accidental overdose [Recovered/Resolved]
  - Heart rate increased [Recovered/Resolved]
  - Anxiety [Recovered/Resolved]
  - Hypotension [Recovered/Resolved]
  - Energy increased [Recovered/Resolved]

NARRATIVE: CASE EVENT DATE: 20140828
